FAERS Safety Report 9663403 (Version 4)
Quarter: 2013Q4

REPORT INFORMATION
  Report Type: Report from Study
  Country: DE (occurrence: DE)
  Receive Date: 20131101
  Receipt Date: 20131209
  Transmission Date: 20140711
  Serious: Yes (Hospitalization)
  Sender: FDA-Public Use
  Company Number: DE-AMGEN-DEUCT2013076909

PATIENT
  Age: 62 Year
  Sex: Female
  Weight: 63 kg

DRUGS (6)
  1. ETANERCEPT [Suspect]
     Indication: PRODUCT USED FOR UNKNOWN INDICATION
     Dosage: 50 MG, QWK
     Route: 065
     Dates: start: 20130710
  2. PREDNISOLON                        /00016201/ [Concomitant]
     Indication: RHEUMATOID ARTHRITIS
     Dosage: 5 MG, 1X/DAY
     Route: 048
     Dates: start: 201307
  3. PREDNISOLON                        /00016201/ [Concomitant]
     Indication: SARCOIDOSIS
     Dosage: UNK
  4. VITAMIN D3 [Concomitant]
     Indication: OSTEOPOROSIS
     Dosage: 1 DF, 1X/DAY
     Route: 048
  5. HYALURONATE SODIUM [Concomitant]
     Indication: CONJUNCTIVITIS
     Dosage: UNK GTT, 5X/DAY
  6. METROGEL [Concomitant]
     Indication: ROSACEA
     Dosage: 0.75 UNK, 2X/DAY

REACTIONS (1)
  - Lobar pneumonia [Recovering/Resolving]
